FAERS Safety Report 4909384-9 (Version None)
Quarter: 2006Q1

REPORT INFORMATION
  Report Type: 
  Country: None (occurrence: None)
  Receive Date: 20060213
  Receipt Date: 20060202
  Transmission Date: 20060701
  Serious: Yes (Hospitalization)
  Sender: FDA-Public Use
  Company Number: PHNR2006AU00521

PATIENT
  Sex: Male

DRUGS (9)
  1. OXYCONTIN [Concomitant]
  2. KEFLEX [Concomitant]
  3. VALPROATE SODIUM [Concomitant]
  4. DIAZEPAM [Concomitant]
  5. TEMAZEPAM [Concomitant]
  6. OXYNORM [Concomitant]
  7. OLANZAPINE [Concomitant]
  8. CLOZARIL [Suspect]
     Dates: start: 20050101
  9. CLOZARIL [Suspect]
     Dosage: UNK, UNK

REACTIONS (5)
  - COMPARTMENT SYNDROME [None]
  - DYSARTHRIA [None]
  - INTENTIONAL DRUG MISUSE [None]
  - LOSS OF CONSCIOUSNESS [None]
  - SEDATION [None]
